FAERS Safety Report 10019406 (Version 2)
Quarter: 2014Q1

REPORT INFORMATION
  Report Type: Spontaneous
  Country: DE (occurrence: DE)
  Receive Date: 20140318
  Receipt Date: 20140328
  Transmission Date: 20141002
  Serious: Yes (Hospitalization, Other)
  Sender: FDA-Public Use
  Company Number: DE-B.I. PHARMACEUTICALS,INC./RIDGEFIELD-2014-BI-11163DE

PATIENT
  Age: 70 Year
  Sex: Female

DRUGS (2)
  1. PRADAXA [Suspect]
     Indication: ATRIAL FIBRILLATION
     Route: 065
     Dates: start: 20121108, end: 20130106
  2. PRADAXA [Suspect]
     Dosage: 1 ANZ
     Route: 065
     Dates: start: 20130107

REACTIONS (2)
  - Renal disorder [Unknown]
  - Plasma cell myeloma [Unknown]
